FAERS Safety Report 18590974 (Version 1)
Quarter: 2020Q4

REPORT INFORMATION
  Report Type: Spontaneous
  Country: JP (occurrence: JP)
  Receive Date: 20201208
  Receipt Date: 20201208
  Transmission Date: 20210114
  Serious: Yes (Other)
  Sender: FDA-Public Use
  Company Number: JP-BAYER-2020-268072

PATIENT
  Age: 70 Year
  Sex: Male

DRUGS (1)
  1. NUBEQA [Suspect]
     Active Substance: DAROLUTAMIDE
     Indication: HORMONE-REFRACTORY PROSTATE CANCER
     Dosage: DAILY DOSE 600 MG
     Dates: start: 20200804

REACTIONS (3)
  - Renal impairment [None]
  - Azotaemia [None]
  - Off label use [None]

NARRATIVE: CASE EVENT DATE: 20200804
